FAERS Safety Report 7435723-3 (Version None)
Quarter: 2011Q2

REPORT INFORMATION
  Report Type: 
  Country: None (occurrence: None)
  Receive Date: 20110425
  Receipt Date: 20110413
  Transmission Date: 20111010
  Serious: Yes (Hospitalization, Other)
  Sender: FDA-Public Use
  Company Number: US-ELI_LILLY_AND_COMPANY-US201008001037

PATIENT
  Sex: Female
  Weight: 51.701 kg

DRUGS (3)
  1. PREDNISONE [Concomitant]
  2. FORTEO [Suspect]
     Dosage: 20 UG, DAILY (1/D)
  3. FORTEO [Suspect]
     Indication: OSTEOPOROSIS
     Dosage: 20 UG, DAILY (1/D)
     Route: 058
     Dates: start: 20100728, end: 20101020

REACTIONS (9)
  - ARTHRALGIA [None]
  - NAUSEA [None]
  - DECREASED APPETITE [None]
  - BURSITIS [None]
  - MOOD SWINGS [None]
  - DEPRESSION [None]
  - MYALGIA [None]
  - MULTIPLE MYELOMA [None]
  - PAIN IN EXTREMITY [None]
